FAERS Safety Report 9166790 (Version 1)
Quarter: 2012Q4

REPORT INFORMATION
  Report Type: 
  Country: DE (occurrence: DE)
  Receive Date: 20121119
  Receipt Date: 20121119
  Transmission Date: 20130627
  Serious: Yes (Disabling)
  Sender: FDA-Public Use
  Company Number: DE-BRACCO-001241

PATIENT
  Sex: Female
  Weight: 70 kg

DRUGS (7)
  1. MULTIHANCE [Suspect]
     Indication: NUCLEAR MAGNETIC RESONANCE IMAGING
     Route: 042
  2. MULTIHANCE [Suspect]
     Indication: BREAST CANCER
     Route: 042
  3. ZINC GLUCONATE [Concomitant]
  4. TAMOXIFEN [Concomitant]
  5. SELEN [Concomitant]
  6. THYROXINE I 125 [Concomitant]
  7. IODINE [Concomitant]

REACTIONS (2)
  - Depression [Recovered/Resolved]
  - Heart rate increased [Recovered/Resolved]
